FAERS Safety Report 5601483-1 (Version None)
Quarter: 2008Q1

REPORT INFORMATION
  Report Type: 
  Country: None (occurrence: None)
  Receive Date: 20080124
  Receipt Date: 20080116
  Transmission Date: 20080703
  Serious: Yes (Hospitalization, Other)
  Sender: FDA-Public Use
  Company Number: US-ABBOTT-08P-163-0433796-00

PATIENT
  Sex: Female
  Weight: 46.762 kg

DRUGS (2)
  1. HUMIRA [Suspect]
     Indication: CROHN'S DISEASE
     Route: 058
     Dates: start: 20071128
  2. HUMIRA [Suspect]

REACTIONS (6)
  - ABDOMINAL ADHESIONS [None]
  - ASTHENIA [None]
  - GALLBLADDER OPERATION [None]
  - HEADACHE [None]
  - NAUSEA [None]
  - VOMITING [None]
